FAERS Safety Report 6838612-8 (Version None)
Quarter: 2010Q3

REPORT INFORMATION
  Report Type: 
  Country: None (occurrence: None)
  Receive Date: 20100709
  Receipt Date: 20100709
  Transmission Date: 20110219
  Serious: Yes (Hospitalization, Other)
  Sender: FDA-Public Use
  Company Number: 011973

PATIENT
  Sex: Male
  Weight: 100.7 kg

DRUGS (9)
  1. NEUPRO [Suspect]
     Indication: PARKINSON'S DISEASE
     Dosage: TRANSDERMAL, 8 MG QD, TRANSDERMAL, 8 MG QD TRANSDERMAL
     Route: 062
     Dates: end: 20100513
  2. NEUPRO [Suspect]
     Indication: PARKINSON'S DISEASE
     Dosage: TRANSDERMAL, 8 MG QD, TRANSDERMAL, 8 MG QD TRANSDERMAL
     Route: 062
     Dates: start: 20050101
  3. CARBIDOPA AND LEVODOPA [Concomitant]
  4. RAMIPRIL [Concomitant]
  5. ASPIRIN [Concomitant]
  6. TORSEMIDE [Concomitant]
  7. THEOPHYLLINE [Concomitant]
  8. SIMVASTATIN [Concomitant]
  9. LEVOTHYROXINE SODIUM [Concomitant]

REACTIONS (5)
  - HALLUCINATION [None]
  - HYPERSEXUALITY [None]
  - JEALOUS DELUSION [None]
  - LIBIDO INCREASED [None]
  - RESTLESSNESS [None]
